FAERS Safety Report 6733084-6 (Version None)
Quarter: 2010Q2

REPORT INFORMATION
  Report Type: 
  Country: None (occurrence: None)
  Receive Date: 20100518
  Receipt Date: 20100504
  Transmission Date: 20101027
  Serious: Yes (Hospitalization)
  Sender: FDA-Public Use
  Company Number: WAES 1005USA00383

PATIENT
  Age: 28 Year
  Sex: Female
  Weight: 63.9572 kg

DRUGS (3)
  1. ISENTRESS [Suspect]
     Indication: HIV INFECTION
     Dosage: 400 MG/BID/PO
     Route: 048
     Dates: start: 20090617
  2. PLACEBO (UNSPECIFIED) UNK [Suspect]
     Indication: HIV INFECTION
     Dosage: 2 TAB/DAILY/PO
     Route: 048
     Dates: start: 20090617
  3. TRUVADA [Suspect]
     Indication: HIV INFECTION
     Dosage: 1 TAB/DAILY/PO
     Route: 048
     Dates: start: 20090617

REACTIONS (2)
  - HYPERPLASIA [None]
  - LYMPHADENITIS [None]
